FAERS Safety Report 10021364 (Version 1)
Quarter: 2014Q1

REPORT INFORMATION
  Report Type: Spontaneous
  Country: US (occurrence: None)
  Receive Date: 20140318
  Receipt Date: 20140318
  Transmission Date: 20141002
  Serious: No
  Sender: FDA-Public Use
  Company Number: None

PATIENT
  Age: 40 Year
  Sex: Male
  Weight: 113.4 kg

DRUGS (4)
  1. NUVARING [Suspect]
     Indication: CONTRACEPTION
     Dosage: INSERT ONE RING
     Route: 067
     Dates: start: 20140226, end: 20140317
  2. IBUPROFEN [Concomitant]
  3. DIPHENHYDRAMINE [Concomitant]
  4. ASPIRIN [Concomitant]

REACTIONS (4)
  - Erythema [None]
  - Skin irritation [None]
  - Penis disorder [None]
  - Skin burning sensation [None]
